FAERS Safety Report 13302710 (Version 1)
Quarter: 2017Q1

REPORT INFORMATION
  Report Type: Spontaneous
  Country: US (occurrence: US)
  Receive Date: 20170307
  Receipt Date: 20170307
  Transmission Date: 20170428
  Serious: Yes (Other)
  Sender: FDA-Public Use
  Company Number: US-SMITH AND NEPHEW, INC-2017SMT00118

PATIENT
  Age: 63 Year
  Sex: Male

DRUGS (1)
  1. REGRANEX [Suspect]
     Active Substance: BECAPLERMIN
     Dosage: UNK
     Dates: start: 201702

REACTIONS (2)
  - Off label use [Not Recovered/Not Resolved]
  - Wound infection staphylococcal [Unknown]

NARRATIVE: CASE EVENT DATE: 201702
